FAERS Safety Report 8182673-3 (Version None)
Quarter: 2012Q1

REPORT INFORMATION
  Report Type: 
  Country: None (occurrence: None)
  Receive Date: 20120305
  Receipt Date: 20120229
  Transmission Date: 20120608
  Serious: No
  Sender: FDA-Public Use
  Company Number: US-PFIZER INC-2012054354

PATIENT
  Sex: Male
  Weight: 113 kg

DRUGS (2)
  1. DIOVAN [Concomitant]
     Indication: HYPERTENSION
     Dosage: UNK
  2. TORISEL [Suspect]
     Indication: RENAL CELL CARCINOMA
     Dosage: UNK, WEEKLY
     Dates: start: 20110501

REACTIONS (2)
  - OEDEMA PERIPHERAL [None]
  - NODULE [None]
